FAERS Safety Report 8277071-8 (Version None)
Quarter: 2012Q2

REPORT INFORMATION
  Report Type: 
  Country: None (occurrence: None)
  Receive Date: 20120412
  Receipt Date: 20120403
  Transmission Date: 20120825
  Serious: No
  Sender: FDA-Public Use
  Company Number: US-B.I. PHARMACEUTICALS,INC./RIDGEFIELD-2012-BP-06223BP

PATIENT
  Sex: Female

DRUGS (9)
  1. NAPROXEN (ALEVE) [Concomitant]
     Indication: BACK PAIN
     Route: 048
     Dates: start: 20110501
  2. GLUCOSAMINE [Concomitant]
     Route: 048
     Dates: start: 20110501, end: 20120402
  3. LYRICA [Concomitant]
     Indication: DEPRESSION
     Route: 048
     Dates: start: 20110501
  4. TRAMADOL HCL [Concomitant]
     Indication: MUSCLE SPASMS
     Route: 048
     Dates: start: 20110501
  5. EQUATE [Concomitant]
     Indication: CONSTIPATION
     Route: 048
     Dates: start: 20110501
  6. BENZTROPINE MESYLATE [Concomitant]
     Indication: MUSCLE SPASMS
     Route: 048
     Dates: start: 20110501
  7. LEXAPRO [Concomitant]
     Route: 048
     Dates: start: 20110501
  8. ZANTAC [Suspect]
     Indication: GASTROOESOPHAGEAL REFLUX DISEASE
     Route: 048
     Dates: start: 20120327
  9. RISPERIDONE [Concomitant]
     Indication: ANXIETY
     Route: 048
     Dates: start: 20020101

REACTIONS (3)
  - DYSPHAGIA [None]
  - NECK PAIN [None]
  - ERUCTATION [None]
